FAERS Safety Report 5068370-1 (Version None)
Quarter: 2006Q3

REPORT INFORMATION
  Report Type: 
  Country: None (occurrence: None)
  Receive Date: 20060802
  Receipt Date: 20050825
  Transmission Date: 20061208
  Serious: No
  Sender: FDA-Public Use
  Company Number: US-BRISTOL-MYERS SQUIBB COMPANY-13089446

PATIENT
  Age: 60 Year
  Sex: Male
  Weight: 103 kg

DRUGS (4)
  1. COUMADIN [Suspect]
     Indication: HEART RATE IRREGULAR
     Dates: start: 20050501
  2. ATENOLOL [Concomitant]
  3. COZAAR [Concomitant]
  4. PROPECIA [Concomitant]
     Indication: PROPHYLAXIS

REACTIONS (1)
  - ALOPECIA [None]
